FAERS Safety Report 4743768-7 (Version None)
Quarter: 2005Q3

REPORT INFORMATION
  Report Type: 
  Country: None (occurrence: None)
  Receive Date: 20050812
  Receipt Date: 20050811
  Transmission Date: 20060218
  Serious: Yes (Other)
  Sender: FDA-Public Use
  Company Number: DE-GLAXOSMITHKLINE-D0047275A

PATIENT
  Age: 35 Year
  Sex: Male
  Weight: 90 kg

DRUGS (1)
  1. QUILONUM RETARD [Suspect]
     Route: 048

REACTIONS (3)
  - INTENTIONAL MISUSE [None]
  - NO ADVERSE DRUG EFFECT [None]
  - SUICIDE ATTEMPT [None]
